FAERS Safety Report 19172562 (Version 1)
Quarter: 2021Q2

REPORT INFORMATION
  Report Type: Spontaneous
  Country: US (occurrence: US)
  Receive Date: 20210422
  Receipt Date: 20210422
  Transmission Date: 20210717
  Serious: Yes (Hospitalization)
  Sender: FDA-Public Use
  Company Number: None

PATIENT
  Sex: Female
  Weight: 60 kg

DRUGS (6)
  1. ONCASPAR [Suspect]
     Active Substance: PEGASPARGASE
  2. DEXAMETHASONE. [Suspect]
     Active Substance: DEXAMETHASONE
  3. CYTARABINE. [Suspect]
     Active Substance: CYTARABINE
  4. VINCRISTINE SULFATE. [Suspect]
     Active Substance: VINCRISTINE SULFATE
  5. DAUNORUBICIN [Suspect]
     Active Substance: DAUNORUBICIN
  6. METHOTREXATE. [Suspect]
     Active Substance: METHOTREXATE

REACTIONS (9)
  - Cerebral vascular occlusion [None]
  - Cerebral mass effect [None]
  - Pyrexia [None]
  - Cerebral venous thrombosis [None]
  - Generalised tonic-clonic seizure [None]
  - Subdural haematoma [None]
  - Vasogenic cerebral oedema [None]
  - Superior sagittal sinus thrombosis [None]
  - Cerebral haemorrhage [None]

NARRATIVE: CASE EVENT DATE: 20210402
